FAERS Safety Report 12607162 (Version 1)
Quarter: 2016Q3

REPORT INFORMATION
  Report Type: Report from Study
  Country: TR (occurrence: TR)
  Receive Date: 20160729
  Receipt Date: 20160729
  Transmission Date: 20161109
  Serious: Yes (Other)
  Sender: FDA-Public Use
  Company Number: TR-CELGENEUS-TUR-2015011547

PATIENT

DRUGS (1)
  1. REVLIMID [Suspect]
     Active Substance: LENALIDOMIDE
     Indication: PLASMA CELL MYELOMA
     Route: 048

REACTIONS (23)
  - Neutropenia [Unknown]
  - Neutropenia [Recovered/Resolved]
  - Thrombocytopenia [Recovered/Resolved]
  - Hyperglycaemia [Recovered/Resolved]
  - Neutropenia [Recovered/Resolved]
  - Neutropenia [Unknown]
  - Anaemia [Recovered/Resolved]
  - Leukopenia [Unknown]
  - Anaemia [Not Recovered/Not Resolved]
  - Neutropenia [Unknown]
  - Anaemia [Unknown]
  - Pneumonia [Unknown]
  - Leukopenia [Recovered/Resolved]
  - Leukopenia [Unknown]
  - Anaemia [Recovered/Resolved]
  - Thrombocytopenia [Unknown]
  - Thrombocytopenia [Unknown]
  - Hypocalcaemia [Unknown]
  - Neutropenia [Unknown]
  - Thrombocytopenia [Unknown]
  - Leukopenia [Unknown]
  - Productive cough [Unknown]
  - Hyperglycaemia [Unknown]

NARRATIVE: CASE EVENT DATE: 20140623
